FAERS Safety Report 5938537-6 (Version None)
Quarter: 2008Q4

REPORT INFORMATION
  Report Type: 
  Country: None (occurrence: None)
  Receive Date: 20081103
  Receipt Date: 20081024
  Transmission Date: 20090506
  Serious: Yes (Other)
  Sender: FDA-Public Use
  Company Number: PHEH2008US09608

PATIENT
  Sex: Male
  Weight: 106.12 kg

DRUGS (17)
  1. TASIGNA [Suspect]
     Dosage: 200 MG, BID
     Route: 048
     Dates: start: 20080912
  2. PREDNISONE [Concomitant]
     Dosage: 5 MG, QD
  3. OMEPRAZOLE [Concomitant]
     Dosage: 20 MG, BID
  4. TACROLIMUS [Concomitant]
     Dosage: 1 MG, BID
  5. METOPROLOL TARTRATE [Concomitant]
     Dosage: 100 MG, BID
  6. CALCIUM CARBONATE [Concomitant]
     Dosage: 1000 MG, BID
  7. VITAMIN D [Concomitant]
     Dosage: 400 IU, QD
  8. AMLODIPINE [Concomitant]
     Dosage: 5 MG, QD
  9. GABAPENTIN [Concomitant]
     Dosage: 3 TABLETS, TID
  10. HUMALOG [Concomitant]
     Dosage: 36 U, BID
  11. INSULIN GLARGINE [Concomitant]
     Dosage: 30 U, QD
  12. MULTI-VITAMINS [Concomitant]
     Dosage: UNK
  13. OS-CAL [Concomitant]
     Dosage: 5 MG, BID
  14. COLECALCIFEROL [Concomitant]
     Dosage: UNK
  15. ALLOPURINOL [Concomitant]
     Dosage: 100 MG, QD
  16. PEN-VEE K [Concomitant]
     Dosage: UNK
  17. FUROSEMIDE [Concomitant]
     Dosage: 40 MG, QD

REACTIONS (11)
  - ARTHRALGIA [None]
  - BLISTER [None]
  - DYSPNOEA [None]
  - HEADACHE [None]
  - NAUSEA [None]
  - OEDEMA [None]
  - OEDEMA PERIPHERAL [None]
  - PAIN [None]
  - PRURITUS [None]
  - RASH PAPULAR [None]
  - VOMITING [None]
